FAERS Safety Report 6799844-0 (Version None)
Quarter: 2010Q2

REPORT INFORMATION
  Report Type: 
  Country: None (occurrence: None)
  Receive Date: 20100615
  Receipt Date: 20100608
  Transmission Date: 20101027
  Serious: Yes (Other)
  Sender: FDA-Public Use
  Company Number: 2010SP032484

PATIENT
  Sex: Female

DRUGS (3)
  1. IMPLANON [Suspect]
     Indication: DRUG USE FOR UNKNOWN INDICATION
     Dates: start: 20080919
  2. ALBUTEROL [Concomitant]
  3. SERETIDE EVOHALER [Concomitant]

REACTIONS (3)
  - ABORTION SPONTANEOUS [None]
  - DRUG EXPOSURE DURING PREGNANCY [None]
  - PREGNANCY WITH IMPLANT CONTRACEPTIVE [None]
